FAERS Safety Report 12463351 (Version 1)
Quarter: 2016Q2

REPORT INFORMATION
  Report Type: Spontaneous
  Country: US (occurrence: None)
  Receive Date: 20160613
  Receipt Date: 20160613
  Transmission Date: 20160815
  Serious: Yes (Disabling, Other)
  Sender: FDA-Public Use
  Company Number: None

PATIENT
  Age: 36 Year
  Sex: Female
  Weight: 83.92 kg

DRUGS (3)
  1. ELIDEL [Suspect]
     Active Substance: PIMECROLIMUS
     Indication: DRY SKIN
     Dosage: APPLIED TO A SURFACE, USUALLY THE SKIN
     Route: 061
     Dates: start: 20150619
  2. INHALER [Concomitant]
     Active Substance: UNSPECIFIED INGREDIENT
  3. THYROID [Concomitant]
     Active Substance: LEVOTHYROXINE\LIOTHYRONINE

REACTIONS (7)
  - Skin fissures [None]
  - Deformity [None]
  - Hypoaesthesia [None]
  - Dry skin [None]
  - Skin discolouration [None]
  - Peripheral swelling [None]
  - Haemorrhage [None]

NARRATIVE: CASE EVENT DATE: 20160611
